FAERS Safety Report 22250520 (Version 4)
Quarter: 2023Q2

REPORT INFORMATION
  Report Type: Spontaneous
  Country: US (occurrence: US)
  Receive Date: 20230425
  Receipt Date: 20230510
  Transmission Date: 20230721
  Serious: No
  Sender: FDA-Public Use
  Company Number: US-SANOFI-01586490

PATIENT
  Age: 90 Year
  Sex: Female

DRUGS (1)
  1. FERRLECIT [Suspect]
     Active Substance: SODIUM FERRIC GLUCONATE COMPLEX
     Indication: Iron deficiency anaemia
     Dosage: 250 MG, 1X

REACTIONS (5)
  - Hyperhidrosis [Unknown]
  - Blood pressure abnormal [Unknown]
  - Dyspnoea [Unknown]
  - Nausea [Unknown]
  - Chest pain [Unknown]

NARRATIVE: CASE EVENT DATE: 20230123
